FAERS Safety Report 7320865-3 (Version None)
Quarter: 2011Q1

REPORT INFORMATION
  Report Type: 
  Country: None (occurrence: None)
  Receive Date: 20110228
  Receipt Date: 20110221
  Transmission Date: 20110831
  Serious: Yes (Death, Other)
  Sender: FDA-Public Use
  Company Number: US-ROCHE-760892

PATIENT
  Sex: Male

DRUGS (5)
  1. DECADRON [Suspect]
     Indication: PROSTATE CANCER
     Route: 065
  2. DOCETAXEL [Suspect]
     Indication: PROSTATE CANCER
     Route: 042
  3. PREDNISONE [Suspect]
     Indication: PROSTATE CANCER
     Route: 065
  4. ESTRAMUSTINE [Suspect]
     Indication: PROSTATE CANCER
     Dosage: DRUG: ESTRAMUSTINE PHOSPHATE
     Route: 065
  5. BEVACIZUMAB [Suspect]
     Indication: PROSTATE CANCER
     Route: 065

REACTIONS (43)
  - MESENTERIC VEIN THROMBOSIS [None]
  - ELECTROCARDIOGRAM ABNORMAL [None]
  - EPISTAXIS [None]
  - GASTROINTESTINAL HAEMORRHAGE [None]
  - MOOD ALTERED [None]
  - INFECTION [None]
  - INTESTINAL PERFORATION [None]
  - ARRHYTHMIA [None]
  - COLITIS [None]
  - DIARRHOEA [None]
  - HYPONATRAEMIA [None]
  - PULMONARY EMBOLISM [None]
  - METABOLIC ACIDOSIS [None]
  - THROMBOCYTOPENIA [None]
  - STOMATITIS [None]
  - ASPARTATE AMINOTRANSFERASE INCREASED [None]
  - HYPERGLYCAEMIA [None]
  - CEREBROVASCULAR ACCIDENT [None]
  - NEUROPATHY PERIPHERAL [None]
  - NEURALGIA [None]
  - PAIN [None]
  - OEDEMA [None]
  - SYNCOPE [None]
  - DECREASED APPETITE [None]
  - CONSTIPATION [None]
  - INTESTINAL OBSTRUCTION [None]
  - NAUSEA [None]
  - DEHYDRATION [None]
  - HYPOALBUMINAEMIA [None]
  - BONE PAIN [None]
  - LEUKOPENIA [None]
  - HYPERTENSION [None]
  - HYPOTENSION [None]
  - HAEMORRHAGE [None]
  - CEREBRAL HAEMORRHAGE [None]
  - COUGH [None]
  - DYSPNOEA [None]
  - NEUTROPENIA [None]
  - FEBRILE NEUTROPENIA [None]
  - FATIGUE [None]
  - HYPOKALAEMIA [None]
  - PROTEINURIA [None]
  - DEEP VEIN THROMBOSIS [None]
